FAERS Safety Report 5725147-9 (Version None)
Quarter: 2008Q2

REPORT INFORMATION
  Report Type: 
  Country: None (occurrence: None)
  Receive Date: 20080429
  Receipt Date: 20080410
  Transmission Date: 20081010
  Serious: No
  Sender: FDA-Public Use
  Company Number: 001#1#2008-00201

PATIENT
  Age: 71 Year
  Sex: Male

DRUGS (1)
  1. NEUPRO [Suspect]
     Dosage: 4MG/24, 1 IN 1 D, TRANSDERMAL
     Route: 062

REACTIONS (1)
  - RASH ERYTHEMATOUS [None]
